FAERS Safety Report 9156325 (Version 2)
Quarter: 2013Q2

REPORT INFORMATION
  Report Type: Spontaneous
  Country: US (occurrence: US)
  Receive Date: 20130312
  Receipt Date: 20130408
  Transmission Date: 20140414
  Serious: Yes (Hospitalization, Other)
  Sender: FDA-Public Use
  Company Number: US-009507513-1303USA002775

PATIENT
  Age: 81 Year
  Sex: Male

DRUGS (8)
  1. ZOCOR [Suspect]
     Dosage: 80 MG DAILY
     Route: 048
  2. GEMFIBROZIL [Interacting]
     Dosage: 600 MG, TWICE DAILY
     Route: 048
  3. ASPIRIN [Concomitant]
     Dosage: UNK
  4. CLOPIDOGREL [Concomitant]
     Dosage: UNK
  5. ISOSORBIDE DINITRATE [Concomitant]
     Dosage: UNK
  6. FUROSEMIDE [Concomitant]
     Dosage: UNK
  7. METOPROLOL TARTRATE [Concomitant]
     Dosage: 100 MG, TWICE DAILY
     Route: 048
  8. PRILOSEC [Concomitant]

REACTIONS (5)
  - Acute coronary syndrome [Unknown]
  - Acute myocardial infarction [Unknown]
  - Drug interaction [Unknown]
  - Renal failure acute [Unknown]
  - Rhabdomyolysis [Unknown]
